FAERS Safety Report 9696992 (Version 4)
Quarter: 2014Q1

REPORT INFORMATION
  Report Type: Spontaneous
  Country: JP (occurrence: JP)
  Receive Date: 20131119
  Receipt Date: 20140114
  Transmission Date: 20141002
  Serious: Yes (Life-Threatening, Hospitalization, Other)
  Sender: FDA-Public Use
  Company Number: JP-009507513-1311JPN006941

PATIENT
  Age: 57 Year
  Sex: Male
  Weight: 63 kg

DRUGS (3)
  1. TEMODAL [Suspect]
     Indication: GLIOBLASTOMA MULTIFORME
     Dosage: 120 MG, 1/ 1 DAY
     Route: 048
     Dates: start: 20130828, end: 20130919
  2. PRIMPERAN [Concomitant]
     Indication: NAUSEA
     Dosage: 5 MG, 1 / 1 DAY
     Route: 048
     Dates: start: 20130828, end: 20130924
  3. BAKTAR [Concomitant]
     Indication: PROPHYLAXIS
     Dosage: 1 DF, 1 / 1 DAY
     Route: 048
     Dates: start: 20130828, end: 20130924

REACTIONS (3)
  - Drug eruption [Recovering/Resolving]
  - Pyrexia [Recovered/Resolved]
  - Rash erythematous [Recovered/Resolved]
